FAERS Safety Report 22004195 (Version 2)
Quarter: 2023Q1

REPORT INFORMATION
  Report Type: Spontaneous
  Country: JP (occurrence: JP)
  Receive Date: 20230217
  Receipt Date: 20230301
  Transmission Date: 20230418
  Serious: Yes (Hospitalization, Other)
  Sender: FDA-Public Use
  Company Number: JP-Accord-300617

PATIENT
  Age: 55 Year
  Sex: Female

DRUGS (1)
  1. CISPLATIN [Suspect]
     Active Substance: CISPLATIN
     Indication: Cervix carcinoma stage III
     Dosage: 40 MG/M2 ON DAYS 1, 8, AND 21 WITH 28-DAY INTERVALS

REACTIONS (4)
  - Autoimmune haemolytic anaemia [Recovered/Resolved]
  - Myelosuppression [Unknown]
  - Haemolysis [Recovered/Resolved]
  - Thrombocytopenia [Unknown]
